FAERS Safety Report 13321055 (Version 1)
Quarter: 2017Q1

REPORT INFORMATION
  Report Type: Spontaneous
  Country: US (occurrence: US)
  Receive Date: 20170310
  Receipt Date: 20170310
  Transmission Date: 20170428
  Serious: No
  Sender: FDA-Public Use
  Company Number: US-ALK ABELLO INC-1064108

PATIENT
  Sex: Male

DRUGS (5)
  1. MIXTURE OF STANDARDIZED MITES [Concomitant]
     Active Substance: DERMATOPHAGOIDES FARINAE\DERMATOPHAGOIDES PTERONYSSINUS
     Route: 058
  2. PENICILLIUM [Concomitant]
     Active Substance: PENICILLIUM CHRYSOGENUM VAR. CHRYSOGENUM
     Route: 058
  3. ASPERGILLUS FUMIGATUS. [Suspect]
     Active Substance: ASPERGILLUS FUMIGATUS
     Indication: IMMUNOMODULATORY THERAPY
     Route: 058
     Dates: start: 20170213, end: 20170213
  4. ALTERNARIA [Concomitant]
     Active Substance: ALTERNARIA ALTERNATA
     Route: 058
  5. HORMODENDRUM [Concomitant]
     Active Substance: CLADOSPORIUM CLADOSPORIOIDES
     Route: 058

REACTIONS (3)
  - Skin lesion [None]
  - Rash [None]
  - Erythema [None]
